FAERS Safety Report 18747510 (Version 1)
Quarter: 2021Q1

REPORT INFORMATION
  Report Type: Report from Study
  Country: None (occurrence: GB)
  Receive Date: 20210115
  Receipt Date: 20210115
  Transmission Date: 20210419
  Serious: Yes (Hospitalization)
  Sender: FDA-Public Use
  Company Number: GB-ABBVIE-20K-167-3685263-00

PATIENT
  Age: 16 Year
  Sex: Male
  Weight: 106 kg

DRUGS (7)
  1. AZATHIOPRINE. [Suspect]
     Active Substance: AZATHIOPRINE
     Indication: CROHN^S DISEASE
     Route: 048
     Dates: start: 20140206, end: 20190430
  2. AZATHIOPRINE. [Suspect]
     Active Substance: AZATHIOPRINE
     Route: 048
     Dates: start: 20190430
  3. OMEPRAZOLE. [Concomitant]
     Active Substance: OMEPRAZOLE
     Indication: CROHN^S DISEASE
     Route: 048
     Dates: start: 20200706
  4. HUMIRA [Suspect]
     Active Substance: ADALIMUMAB
     Route: 058
     Dates: start: 20180313, end: 20180903
  5. HUMIRA [Suspect]
     Active Substance: ADALIMUMAB
     Dosage: PATIENT ON 80MG / 40MG ALTERNATE WEEKS
     Route: 058
     Dates: start: 20180903, end: 20190727
  6. AMGEVITA [Concomitant]
     Active Substance: ADALIMUMAB
     Indication: CROHN^S DISEASE
     Route: 058
     Dates: start: 20190727
  7. HUMIRA [Suspect]
     Active Substance: ADALIMUMAB
     Indication: CROHN^S DISEASE
     Route: 058
     Dates: start: 20161118, end: 20180313

REACTIONS (1)
  - Sleep study [Recovered/Resolved]

NARRATIVE: CASE EVENT DATE: 20200812
